FAERS Safety Report 8462032-6 (Version None)
Quarter: 2012Q2

REPORT INFORMATION
  Report Type: 
  Country: None (occurrence: None)
  Receive Date: 20120323
  Receipt Date: 20111025
  Transmission Date: 20120825
  Serious: Yes (Hospitalization)
  Sender: FDA-Public Use
  Company Number: 163-21880-11100540

PATIENT
  Age: 83 Year
  Sex: Male

DRUGS (7)
  1. ASPIRIN [Concomitant]
  2. ARICEPT [Concomitant]
  3. SERTRALINE HYDROCHLORIDE [Concomitant]
  4. NEXIUM [Concomitant]
  5. LENALIDOMIDE [Suspect]
     Indication: MULTIPLE MYELOMA
     Dosage: 5 MG, DAILY FOR 21 DAYS, PO
     Route: 048
     Dates: start: 20110918, end: 20111001
  6. RISPERIDONE [Concomitant]
  7. MIDODRINE HYDROCHLORIDE [Concomitant]

REACTIONS (2)
  - FALL [None]
  - ORTHOSTATIC HYPOTENSION [None]
